FAERS Safety Report 9109486 (Version 2)
Quarter: 2013Q2

REPORT INFORMATION
  Report Type: Spontaneous
  Country: US (occurrence: US)
  Receive Date: 20130222
  Receipt Date: 20130408
  Transmission Date: 20140414
  Serious: No
  Sender: FDA-Public Use
  Company Number: US-PFIZER INC-2013061398

PATIENT
  Age: 25 Year
  Sex: Female

DRUGS (1)
  1. BENEFIX [Suspect]
     Indication: FACTOR VIII DEFICIENCY
     Dosage: UNK
     Dates: start: 2008

REACTIONS (1)
  - Influenza [Unknown]
